FAERS Safety Report 9776716 (Version 2)
Quarter: 2013Q4

REPORT INFORMATION
  Report Type: Report from Study
  Country: PR (occurrence: PR)
  Receive Date: 20131220
  Receipt Date: 20131220
  Transmission Date: 20140711
  Serious: Yes (Other)
  Sender: FDA-Public Use
  Company Number: PR-ABBVIE-13P-131-1163043-00

PATIENT
  Sex: Male
  Weight: 110.78 kg

DRUGS (15)
  1. HUMIRA [Suspect]
     Indication: RHEUMATOID ARTHRITIS
     Route: 058
     Dates: end: 201306
  2. HUMIRA [Suspect]
     Route: 058
  3. RELAFEN [Concomitant]
     Indication: ANTIINFLAMMATORY THERAPY
     Dosage: 1 WHEN NECESSARY
     Route: 048
  4. NAPROXEN [Concomitant]
     Indication: ANTIINFLAMMATORY THERAPY
     Route: 048
  5. SIPAP [Concomitant]
     Indication: SLEEP APNOEA SYNDROME
     Dosage: EVERY NIGHT
  6. METHOTREXATE [Concomitant]
     Indication: RHEUMATOID ARTHRITIS
     Route: 048
  7. FOLIC ACID [Concomitant]
     Indication: RHEUMATOID ARTHRITIS
     Route: 048
  8. SYNTHROID [Concomitant]
     Indication: THYROID DISORDER
     Route: 048
  9. SINGULAIR [Concomitant]
     Indication: ASTHMA
     Route: 048
  10. METRAZOLE [Concomitant]
     Indication: GASTRIC DISORDER
     Route: 048
  11. ZANTAC [Concomitant]
     Indication: GASTRIC DISORDER
     Route: 048
  12. UNKNOWN MEDICATION [Concomitant]
     Indication: PRODUCT USED FOR UNKNOWN INDICATION
  13. UNKNOWN MEDICATION [Concomitant]
     Indication: PRODUCT USED FOR UNKNOWN INDICATION
  14. ACTIVAN [Concomitant]
     Indication: PANIC ATTACK
     Route: 048
  15. SAPHRIS [Concomitant]
     Indication: PANIC ATTACK

REACTIONS (4)
  - Carpal tunnel syndrome [Recovering/Resolving]
  - Malaise [Unknown]
  - Nasopharyngitis [Recovered/Resolved]
  - Arthralgia [Not Recovered/Not Resolved]
